FAERS Safety Report 9897143 (Version 2)
Quarter: 2014Q1

REPORT INFORMATION
  Report Type: Report from Study
  Country: MX (occurrence: MX)
  Receive Date: 20140214
  Receipt Date: 20140215
  Transmission Date: 20141002
  Serious: Yes (Other)
  Sender: FDA-Public Use
  Company Number: MX-ROCHE-1347768

PATIENT
  Age: 63 Year
  Sex: Male
  Weight: 59 kg

DRUGS (4)
  1. RANIBIZUMAB [Suspect]
     Indication: DIABETIC RETINOPATHY
     Dosage: 0.5/0.05 MG/ML
     Route: 050
     Dates: start: 201306
  2. RANIBIZUMAB [Suspect]
     Indication: GLAUCOMA
     Dosage: 0.5/0.05 MG/ML, 3 INJECTIONS EVERY MONTH
     Route: 050
  3. RANIBIZUMAB [Suspect]
     Route: 050
     Dates: start: 201301
  4. INSULIN NPH [Concomitant]
     Indication: DIABETES MELLITUS
     Route: 065
     Dates: start: 201206

REACTIONS (3)
  - Cataract [Not Recovered/Not Resolved]
  - Blood glucose increased [Not Recovered/Not Resolved]
  - Off label use [Unknown]
